FAERS Safety Report 18204219 (Version 6)
Quarter: 2020Q4

REPORT INFORMATION
  Report Type: Spontaneous
  Country: BR (occurrence: BR)
  Receive Date: 20200827
  Receipt Date: 20201027
  Transmission Date: 20210113
  Serious: Yes (Hospitalization)
  Sender: FDA-Public Use
  Company Number: BR-CELGENEUS-BRA-20200805922

PATIENT
  Age: 68 Year
  Sex: Male
  Weight: 77 kg

DRUGS (16)
  1. DEXAMETHASONE. [Suspect]
     Active Substance: DEXAMETHASONE
     Indication: PLASMA CELL MYELOMA
     Dosage: 4 MILLIGRAM
     Route: 065
     Dates: start: 20190704, end: 20200728
  2. VANCOMYCIN [Concomitant]
     Active Substance: VANCOMYCIN
     Indication: PNEUMONIA LEGIONELLA
     Route: 065
  3. PARACETAMOL [Concomitant]
     Active Substance: ACETAMINOPHEN
     Indication: PRODUCT USED FOR UNKNOWN INDICATION
     Route: 065
  4. MEROPENEM. [Concomitant]
     Active Substance: MEROPENEM
     Indication: PNEUMONIA LEGIONELLA
     Route: 065
  5. LEVOTHYROXINE. [Concomitant]
     Active Substance: LEVOTHYROXINE
     Indication: PRODUCT USED FOR UNKNOWN INDICATION
     Dosage: 25 MICROGRAM
     Route: 065
  6. OXACILLIN [Concomitant]
     Active Substance: OXACILLIN SODIUM
     Indication: URINARY TRACT INFECTION
  7. VALTREX [Concomitant]
     Active Substance: VALACYCLOVIR HYDROCHLORIDE
     Indication: PRODUCT USED FOR UNKNOWN INDICATION
     Dosage: 1000 MILLIGRAM
     Route: 065
  8. LENALIDOMIDE [Suspect]
     Active Substance: LENALIDOMIDE
     Indication: PLASMA CELL MYELOMA
     Dosage: 10 MILLIGRAM
     Route: 048
     Dates: start: 20190704, end: 20200728
  9. MEROPENEM. [Concomitant]
     Active Substance: MEROPENEM
     Indication: URINARY TRACT INFECTION
  10. VELCADE [Concomitant]
     Active Substance: BORTEZOMIB
     Indication: PLASMA CELL MYELOMA
     Route: 058
     Dates: start: 20191226, end: 20191226
  11. SELOZOK [Concomitant]
     Active Substance: METOPROLOL SUCCINATE
     Indication: PRODUCT USED FOR UNKNOWN INDICATION
     Dosage: 100 MILLIGRAM
     Route: 065
  12. ZOMETA [Concomitant]
     Active Substance: ZOLEDRONIC ACID
     Indication: PRODUCT USED FOR UNKNOWN INDICATION
     Route: 065
  13. DARATUMUMAB [Concomitant]
     Active Substance: DARATUMUMAB
     Indication: PLASMA CELL MYELOMA
     Dosage: 1800 MILLIGRAM
     Route: 058
     Dates: start: 20190704, end: 20200728
  14. GLICLAZIDE [Concomitant]
     Active Substance: GLICLAZIDE
     Indication: PRODUCT USED FOR UNKNOWN INDICATION
     Dosage: 60 MILLIGRAM
     Route: 065
  15. VANCOMYCIN [Concomitant]
     Active Substance: VANCOMYCIN
     Indication: URINARY TRACT INFECTION
  16. OXACILLIN [Concomitant]
     Active Substance: OXACILLIN SODIUM
     Indication: PNEUMONIA LEGIONELLA
     Route: 065

REACTIONS (1)
  - Optic neuritis [Not Recovered/Not Resolved]

NARRATIVE: CASE EVENT DATE: 20200710
